FAERS Safety Report 14649828 (Version 1)
Quarter: 2018Q1

REPORT INFORMATION
  Report Type: Spontaneous
  Country: US (occurrence: US)
  Receive Date: 20180316
  Receipt Date: 20180316
  Transmission Date: 20180509
  Serious: Yes (Hospitalization)
  Sender: FDA-Public Use
  Company Number: US-ASTELLAS-2018US012464

PATIENT
  Age: 20 Year
  Sex: Female

DRUGS (10)
  1. ISAVUCONAZOLE [Interacting]
     Active Substance: ISAVUCONAZOLE
     Indication: PROPHYLAXIS
     Dosage: LOADING DOSE  OF 372 MG, EVERY 8 HOURS FOR 6 DOSES
     Route: 042
  2. AMIKACIN [Concomitant]
     Active Substance: AMIKACIN
     Indication: INFECTIVE PULMONARY EXACERBATION OF CYSTIC FIBROSIS
     Dosage: 60 MCG/ML, UNKNOWN FREQ.
     Route: 065
  3. ISAVUCONAZOLE [Interacting]
     Active Substance: ISAVUCONAZOLE
     Dosage: MAINTAINENCE DOSE OF 372 MG, ONCE DAILY WHICH WAS GIVEN OVER 1 HOUR
     Route: 042
  4. METHYLPREDNISOLONE. [Interacting]
     Active Substance: METHYLPREDNISOLONE
     Indication: LUNG TRANSPLANT
     Dosage: 125 MG, EVERY 8 HOURS X 3 DOSES
     Route: 042
  5. MYCOPHENOLATE MOFETIL. [Concomitant]
     Active Substance: MYCOPHENOLATE MOFETIL
     Indication: LUNG TRANSPLANT
     Route: 048
  6. PREDNISONE. [Interacting]
     Active Substance: PREDNISONE
     Indication: LUNG TRANSPLANT
     Route: 048
  7. LINEZOLID. [Concomitant]
     Active Substance: LINEZOLID
     Indication: INFECTIVE PULMONARY EXACERBATION OF CYSTIC FIBROSIS
     Route: 042
  8. VORICONAZOLE. [Concomitant]
     Active Substance: VORICONAZOLE
     Indication: INFECTIVE PULMONARY EXACERBATION OF CYSTIC FIBROSIS
     Route: 042
  9. TACROLIMUS. [Suspect]
     Active Substance: TACROLIMUS
     Indication: LUNG TRANSPLANT
     Dosage: UNK UNK, UNKNOWN FREQ. (12 HOUR TROUGH OF 8 TO 12 NG/ML)
     Route: 065
  10. BASILIXIMAB [Concomitant]
     Active Substance: BASILIXIMAB
     Indication: LUNG TRANSPLANT
     Dosage: 20 MG, UNKNOWN FREQ. (POD 1 AND 5)
     Route: 042

REACTIONS (8)
  - Diarrhoea [Unknown]
  - Renal injury [Unknown]
  - Off label use [Unknown]
  - Abdominal discomfort [Unknown]
  - Drug level below therapeutic [Unknown]
  - Drug interaction [Unknown]
  - Nausea [Unknown]
  - Pseudomonas infection [Unknown]
